FAERS Safety Report 18590722 (Version 1)
Quarter: 2020Q4

REPORT INFORMATION
  Report Type: Spontaneous
  Country: US (occurrence: US)
  Receive Date: 20201208
  Receipt Date: 20201208
  Transmission Date: 20210114
  Serious: Yes (Hospitalization)
  Sender: FDA-Public Use
  Company Number: None

PATIENT
  Sex: Female

DRUGS (5)
  1. NAPROXEN TAB 375MG [Concomitant]
     Dates: start: 20201204
  2. PREDNISONE TAB 2.5MG [Concomitant]
     Dates: start: 20201204
  3. ENBREL [Suspect]
     Active Substance: ETANERCEPT
     Indication: RHEUMATOID ARTHRITIS
     Dosage: ?          OTHER FREQUENCY:EVERY 7 DAYS;?
     Route: 058
     Dates: start: 20171031
  4. ALENDRONATE [Concomitant]
     Active Substance: ALENDRONATE SODIUM
     Dates: start: 20201204
  5. FOLIC ACID TAB 1000MCG [Concomitant]
     Dates: start: 20201204

REACTIONS (3)
  - Arthralgia [None]
  - Therapeutic product effect decreased [None]
  - Thyroid disorder [None]

NARRATIVE: CASE EVENT DATE: 20201201
